FAERS Safety Report 9008091 (Version 2)
Quarter: 2013Q1

REPORT INFORMATION
  Report Type: Spontaneous
  Country: US (occurrence: US)
  Receive Date: 20130111
  Receipt Date: 20130308
  Transmission Date: 20140127
  Serious: Yes (Other)
  Sender: FDA-Public Use
  Company Number: US-BAYER-2013-003356

PATIENT
  Age: 34 Year
  Sex: Female
  Weight: 76.19 kg

DRUGS (2)
  1. MIRENA [Suspect]
     Indication: CONTRACEPTION
     Dosage: 20 MCG/24HR, CONT
     Route: 015
     Dates: start: 20121231, end: 20121231
  2. CYTOTEC [Concomitant]
     Dosage: 200 MG, UNK

REACTIONS (2)
  - Uterine perforation [Recovered/Resolved]
  - Device difficult to use [None]
